FAERS Safety Report 19679614 (Version 1)
Quarter: 2021Q3

REPORT INFORMATION
  Report Type: Spontaneous
  Country: US (occurrence: US)
  Receive Date: 20210810
  Receipt Date: 20210810
  Transmission Date: 20211014
  Serious: No
  Sender: FDA-Public Use
  Company Number: US-ORGANON-O2107USA001673

PATIENT
  Sex: Male

DRUGS (4)
  1. PREGNYL [Suspect]
     Active Substance: CHORIOGONADOTROPIN ALFA
     Dosage: 0.5 MILLILITER ONCE A WEEK
  2. PREGNYL [Suspect]
     Active Substance: CHORIOGONADOTROPIN ALFA
     Dosage: 0.5 MILLILITER ONCE A WEEK
     Dates: start: 20210701
  3. WATER FOR INJECTION [Suspect]
     Active Substance: WATER
     Dosage: UNK
  4. WATER FOR INJECTION [Suspect]
     Active Substance: WATER
     Dosage: UNK
     Dates: start: 20210701

REACTIONS (3)
  - Product reconstitution quality issue [Unknown]
  - Product dose omission issue [Unknown]
  - No adverse event [Unknown]

NARRATIVE: CASE EVENT DATE: 20210701
